FAERS Safety Report 6637688-0 (Version None)
Quarter: 2010Q1

REPORT INFORMATION
  Report Type: 
  Country: None (occurrence: None)
  Receive Date: 20100312
  Receipt Date: 20100225
  Transmission Date: 20100710
  Serious: Yes (Hospitalization)
  Sender: FDA-Public Use
  Company Number: 2010000689

PATIENT
  Sex: Male

DRUGS (1)
  1. TARCEVA [Suspect]
     Indication: LUNG NEOPLASM MALIGNANT
     Dosage: 150 MG QD, ORAL
     Route: 048
     Dates: start: 20100211, end: 20100223

REACTIONS (5)
  - AGITATION [None]
  - BLOOD PRESSURE DECREASED [None]
  - DECREASED APPETITE [None]
  - HEART RATE INCREASED [None]
  - STOMATITIS [None]
